FAERS Safety Report 7194443-3 (Version None)
Quarter: 2010Q4

REPORT INFORMATION
  Report Type: 
  Country: None (occurrence: None)
  Receive Date: 20101223
  Receipt Date: 20101217
  Transmission Date: 20110411
  Serious: Yes (Disabling)
  Sender: FDA-Public Use
  Company Number: BG-ASTRAZENECA-2010SE60038

PATIENT
  Age: 50 Year
  Sex: Male
  Weight: 93 kg

DRUGS (6)
  1. CRESTOR [Suspect]
     Indication: DYSLIPIDAEMIA
     Route: 048
     Dates: start: 20100801
  2. CRESTOR [Suspect]
     Indication: HYPERTENSION
     Route: 048
     Dates: start: 20100801
  3. CRESTOR [Suspect]
     Route: 048
  4. CRESTOR [Suspect]
     Route: 048
  5. PRESTARIUM [Concomitant]
     Indication: HYPERTENSION
     Route: 048
  6. BETALOC ZOK [Concomitant]
     Indication: HYPERTENSION
     Route: 048

REACTIONS (1)
  - GOUT [None]
